FAERS Safety Report 8201014-6 (Version None)
Quarter: 2012Q1

REPORT INFORMATION
  Report Type: 
  Country: None (occurrence: None)
  Receive Date: 20120312
  Receipt Date: 20120308
  Transmission Date: 20120608
  Serious: No
  Sender: FDA-Public Use
  Company Number: US-PFIZER INC-2012020986

PATIENT
  Sex: Female
  Weight: 77.098 kg

DRUGS (2)
  1. IBUPROFEN (ADVIL) [Suspect]
     Indication: ARTHRITIS
     Dosage: UNK, 3X/DAY
     Route: 048
     Dates: start: 20120101, end: 20120117
  2. IBUPROFEN (ADVIL) [Concomitant]
     Dosage: UNK, 3 TIMES DAILY
     Dates: start: 20120101

REACTIONS (2)
  - MUSCLE SPASMS [None]
  - DRUG INEFFECTIVE [None]
